FAERS Safety Report 4717065-X (Version None)
Quarter: 2005Q3

REPORT INFORMATION
  Report Type: 
  Country: None (occurrence: None)
  Receive Date: 20050715
  Receipt Date: 20050705
  Transmission Date: 20060218
  Serious: Yes (Death)
  Sender: FDA-Public Use
  Company Number: 2005098097

PATIENT
  Age: 76 Year
  Sex: Female

DRUGS (2)
  1. UNASYN [Suspect]
     Indication: ILL-DEFINED DISORDER
     Dosage: 1.5-3 MG/DAY (1.5 MG), INTRAVENOUS
     Route: 042
     Dates: start: 20050625, end: 20050628
  2. VOLTAREN [Concomitant]

REACTIONS (4)
  - BLOOD PRESSURE ABNORMAL [None]
  - CARDIO-RESPIRATORY ARREST [None]
  - CLOSTRIDIUM COLITIS [None]
  - MELAENA [None]
